FAERS Safety Report 10467836 (Version 2)
Quarter: 2014Q4

REPORT INFORMATION
  Report Type: Spontaneous
  Country: US (occurrence: US)
  Receive Date: 20140922
  Receipt Date: 20141022
  Transmission Date: 20150528
  Serious: Yes (Hospitalization, Other)
  Sender: FDA-Public Use
  Company Number: US-ASTELLAS-2014US012773

PATIENT
  Age: 94 Year
  Sex: Female

DRUGS (3)
  1. VESICARE [Suspect]
     Active Substance: SOLIFENACIN SUCCINATE
     Dosage: ??
     Route: 065
  2. VESICARE [Suspect]
     Active Substance: SOLIFENACIN SUCCINATE
     Indication: HYPERTONIC BLADDER
     Route: 048
     Dates: start: 20140116, end: 20140205
  3. VESICARE [Suspect]
     Active Substance: SOLIFENACIN SUCCINATE
     Dosage: 5 MG,DAILY
     Route: 048
     Dates: start: 20120104, end: 20130530

REACTIONS (2)
  - Pneumonia [Unknown]
  - Hospitalisation [Unknown]

NARRATIVE: CASE EVENT DATE: 2014
